FAERS Safety Report 4572082-8 (Version None)
Quarter: 2005Q1

REPORT INFORMATION
  Report Type: 
  Country: None (occurrence: None)
  Receive Date: 20050202
  Receipt Date: 20050119
  Transmission Date: 20050727
  Serious: Yes (Other)
  Sender: FDA-Public Use
  Company Number: USA050188755

PATIENT
  Age: 71 Year
  Sex: Female
  Weight: 49 kg

DRUGS (2)
  1. HUMULIN N [Suspect]
     Dosage: 30 U DAY
     Dates: start: 19950101
  2. INSULIN [Suspect]

REACTIONS (9)
  - BLINDNESS [None]
  - BLOOD GLUCOSE DECREASED [None]
  - BLOOD GLUCOSE INCREASED [None]
  - BODY HEIGHT DECREASED [None]
  - CORNEAL SCAR [None]
  - MACULAR DEGENERATION [None]
  - POST PROCEDURAL COMPLICATION [None]
  - RASH [None]
  - RETINOPATHY [None]
